FAERS Safety Report 4893838-8 (Version None)
Quarter: 2005Q4

REPORT INFORMATION
  Report Type: 
  Country: None (occurrence: None)
  Receive Date: 20051223
  Receipt Date: 20051029
  Transmission Date: 20060501
  Serious: No
  Sender: FDA-Public Use
  Company Number: 2005PV003723

PATIENT
  Age: 65 Year
  Sex: Female
  Weight: 77.5651 kg

DRUGS (13)
  1. SYMLIN [Suspect]
     Indication: DIABETES MELLITUS INSULIN-DEPENDENT
     Dosage: 15 MCG;TID;SC, 30 MCG;TID;SC
     Route: 058
     Dates: start: 20051027, end: 20051102
  2. SYMLIN [Suspect]
     Indication: DIABETES MELLITUS INSULIN-DEPENDENT
     Dosage: 15 MCG;TID;SC, 30 MCG;TID;SC
     Route: 058
     Dates: start: 20051103
  3. HUMALOG U-100 [Concomitant]
  4. ALLEGRA [Concomitant]
  5. LASIX [Concomitant]
  6. SYNTHROID [Concomitant]
  7. ASPIRIN [Concomitant]
  8. AVALIDE [Concomitant]
  9. PROZAC [Concomitant]
  10. LIBRIUM [Concomitant]
  11. KLOR-KOHN [Concomitant]
  12. NITRGLYCERIN TRANSDERMAL SYSTEM [Concomitant]
  13. FUROSEMIDE [Concomitant]

REACTIONS (7)
  - BLOOD GLUCOSE INCREASED [None]
  - DIZZINESS [None]
  - FEELING OF RELAXATION [None]
  - OEDEMA PERIPHERAL [None]
  - PRURITUS GENERALISED [None]
  - SOMNOLENCE [None]
  - SWELLING FACE [None]
